FAERS Safety Report 12746656 (Version 1)
Quarter: 2016Q3

REPORT INFORMATION
  Report Type: Spontaneous
  Country: FR (occurrence: FR)
  Receive Date: 20160915
  Receipt Date: 20160915
  Transmission Date: 20161109
  Serious: Yes (Hospitalization)
  Sender: FDA-Public Use
  Company Number: FR-ASTRAZENECA-2016SE96773

PATIENT
  Age: 20382 Day
  Sex: Male

DRUGS (13)
  1. VELCADE [Concomitant]
     Active Substance: BORTEZOMIB
  2. DEXAMETHASONE. [Concomitant]
     Active Substance: DEXAMETHASONE
     Dosage: TWO TIMES PER WEEK THREE WEEKS OUT OF EVERY FOUR
  3. INEXIUM [Suspect]
     Active Substance: ESOMEPRAZOLE
     Route: 048
     Dates: start: 201605, end: 20160722
  4. LEDERFOLINE [Suspect]
     Active Substance: LEUCOVORIN CALCIUM
     Route: 048
     Dates: start: 201605, end: 20160722
  5. DARATUMUMAB [Concomitant]
     Active Substance: DARATUMUMAB
  6. KARDEGIC [Concomitant]
     Active Substance: ASPIRIN LYSINE
  7. ZELITREX [Suspect]
     Active Substance: VALACYCLOVIR HYDROCHLORIDE
     Route: 048
     Dates: start: 201605, end: 20160722
  8. AMLOR [Concomitant]
     Active Substance: AMLODIPINE BESYLATE
  9. BACTRIM [Concomitant]
     Active Substance: SULFAMETHOXAZOLE\TRIMETHOPRIM
     Dates: start: 20160720, end: 20160721
  10. COTRIMOXAZOLE [Suspect]
     Active Substance: SULFAMETHOXAZOLE\TRIMETHOPRIM
     Indication: ANTIBIOTIC PROPHYLAXIS
     Route: 048
     Dates: start: 201605, end: 20160720
  11. ORACILLINE [Suspect]
     Active Substance: PENICILLIN V
     Route: 048
     Dates: start: 201605, end: 20160722
  12. THALIDOMIDE [Concomitant]
     Active Substance: THALIDOMIDE
  13. DARATUMUMAB [Concomitant]
     Active Substance: DARATUMUMAB

REACTIONS (1)
  - Drug reaction with eosinophilia and systemic symptoms [Recovered/Resolved]

NARRATIVE: CASE EVENT DATE: 20160714
